FAERS Safety Report 13167851 (Version 4)
Quarter: 2017Q2

REPORT INFORMATION
  Report Type: Spontaneous
  Country: DE (occurrence: DE)
  Receive Date: 20170131
  Receipt Date: 20170413
  Transmission Date: 20170830
  Serious: Yes (Hospitalization, Other)
  Sender: FDA-Public Use
  Company Number: DE-UCBSA-2017003503

PATIENT
  Age: 69 Year
  Sex: Male
  Weight: 80 kg

DRUGS (16)
  1. HCT HEXAL [Suspect]
     Active Substance: HYDROCHLOROTHIAZIDE
     Dosage: 25 MG
     Dates: start: 20170123, end: 201701
  2. KEPPRA [Concomitant]
     Active Substance: LEVETIRACETAM
     Indication: PRODUCT USED FOR UNKNOWN INDICATION
     Dosage: 500 MG, 2X/DAY (BID)
  3. SIMVASTATINE [Suspect]
     Active Substance: SIMVASTATIN
     Indication: PRODUCT USED FOR UNKNOWN INDICATION
     Dosage: 30
     Dates: start: 20170123, end: 201701
  4. ACETYLSALICYLIC ACID [Suspect]
     Active Substance: ASPIRIN
     Dosage: 100 MG
     Dates: start: 20170123, end: 201701
  5. EUTHYROX [Suspect]
     Active Substance: LEVOTHYROXINE SODIUM
     Dosage: 125 ?G
     Dates: start: 20170123, end: 201701
  6. VALSARTAN. [Suspect]
     Active Substance: VALSARTAN
     Indication: PRODUCT USED FOR UNKNOWN INDICATION
     Dosage: 80 MG, 2 TAB IN MORNING AND 1 TAB IN EVENING
  7. ERGENYL CHRONO [Suspect]
     Active Substance: VALPROIC ACID
     Dosage: 500
     Dates: start: 20170123, end: 201701
  8. VALSARTAN. [Suspect]
     Active Substance: VALSARTAN
     Dosage: 80 MG
     Dates: start: 20170123, end: 201701
  9. VIMPAT [Suspect]
     Active Substance: LACOSAMIDE
     Indication: EPILEPSY
     Dosage: 100 MG, 2X/DAY (BID)
     Route: 048
     Dates: end: 201701
  10. HCT HEXAL [Suspect]
     Active Substance: HYDROCHLOROTHIAZIDE
     Indication: PRODUCT USED FOR UNKNOWN INDICATION
     Dosage: 12.5 MG, ONCE DAILY (QD), 25 MG HALF TAB IN MORNING
  11. ERGENYL CHRONO [Suspect]
     Active Substance: VALPROIC ACID
     Indication: PRODUCT USED FOR UNKNOWN INDICATION
     Dosage: 500 MG, 2X/DAY (BID)
     Dates: end: 201701
  12. VIMPAT [Suspect]
     Active Substance: LACOSAMIDE
     Dosage: 100
     Dates: start: 20170123, end: 201701
  13. TARGIN [Suspect]
     Active Substance: NALOXONE HYDROCHLORIDE\OXYCODONE HYDROCHLORIDE
     Indication: PRODUCT USED FOR UNKNOWN INDICATION
     Dosage: 20/10 MG
     Dates: start: 20170123, end: 201701
  14. EUTHYROX [Suspect]
     Active Substance: LEVOTHYROXINE SODIUM
     Indication: PRODUCT USED FOR UNKNOWN INDICATION
     Dosage: 125 ?G, ONCE DAILY (QD)
  15. INSUMAN COMB [Concomitant]
     Active Substance: INSULIN NOS
     Indication: PRODUCT USED FOR UNKNOWN INDICATION
     Dosage: 25 IU, 2X/DAY (BID)
  16. ACETYLSALICYLIC ACID [Suspect]
     Active Substance: ASPIRIN
     Indication: ATRIAL FIBRILLATION
     Dosage: 100 MG, ONCE DAILY (QD)

REACTIONS (10)
  - Fall [Recovered/Resolved]
  - Disorientation [Recovered/Resolved]
  - Dementia [Unknown]
  - Haematoma [Unknown]
  - Acidosis [Recovered/Resolved]
  - Vomiting [Recovered/Resolved]
  - Somnolence [Recovered/Resolved]
  - Suicide attempt [Recovered/Resolved]
  - Trifascicular block [Recovered/Resolved]
  - Pneumonia [Unknown]

NARRATIVE: CASE EVENT DATE: 2017
